FAERS Safety Report 4399999-1 (Version None)
Quarter: 2004Q3

REPORT INFORMATION
  Report Type: 
  Country: None (occurrence: None)
  Receive Date: 20040716
  Receipt Date: 20040630
  Transmission Date: 20050211
  Serious: Yes (Hospitalization)
  Sender: FDA-Public Use
  Company Number: 207634

PATIENT
  Age: 37 Year
  Sex: Female
  Weight: 69 kg

DRUGS (9)
  1. HERCEPTIN [Suspect]
     Indication: BREAST CANCER
     Dosage: SEE IMAGE
     Route: 042
     Dates: start: 20040217, end: 20040217
  2. HERCEPTIN [Suspect]
     Indication: BREAST CANCER
     Dosage: SEE IMAGE
     Route: 042
     Dates: start: 20040224
  3. DOCETAXEL (DOCETAXEL) [Suspect]
     Indication: BREAST CANCER
     Dosage: 127.5 MG, Q3W, INTRAVENOUS
     Route: 042
     Dates: start: 20040218
  4. CARBOPLATIN [Suspect]
     Indication: BREAST CANCER
     Dosage: 650 MG, Q3W, INTRAVENOUS
     Route: 042
     Dates: start: 20040218
  5. LOMOTIL [Concomitant]
  6. DEXAMETHASONE [Concomitant]
  7. ZOFRAN (ODANSETRON HYDROCHLORIDE) [Concomitant]
  8. GRANOCYTE (LENOGRASTIM) [Concomitant]
  9. CIPROFLOXACIN [Concomitant]

REACTIONS (5)
  - COUGH [None]
  - DIARRHOEA [None]
  - FATIGUE [None]
  - FEBRILE NEUTROPENIA [None]
  - NEUTROPENIA [None]
